FAERS Safety Report 15287411 (Version 1)
Quarter: 2018Q3

REPORT INFORMATION
  Report Type: Spontaneous
  Country: KR (occurrence: KR)
  Receive Date: 20180817
  Receipt Date: 20180817
  Transmission Date: 20181010
  Serious: Yes (Death, Other)
  Sender: FDA-Public Use
  Company Number: KR-009507513-1808KOR005019

PATIENT
  Sex: Male

DRUGS (21)
  1. CODEINE [Concomitant]
     Active Substance: CODEINE
     Dosage: 40 MG (2T), UNK
     Route: 048
     Dates: start: 20180704
  2. CODEINE [Concomitant]
     Active Substance: CODEINE
     Dosage: 20 MG (1T), UNK
     Route: 048
     Dates: start: 20180704
  3. MEDILAC S [Concomitant]
     Dosage: 125 MG (1C), UNK
     Route: 048
     Dates: start: 20180704
  4. COFREL [Concomitant]
     Dosage: 20 MG (1T), UNK
     Route: 048
     Dates: start: 20180704
  5. ASIMA [Concomitant]
     Active Substance: DOXOFYLLINE
     Dosage: 400 MG (1T), UNK
     Route: 048
     Dates: start: 20180704
  6. MEDILAC S [Concomitant]
     Dosage: 125 MG (1C), UNK
     Route: 048
     Dates: start: 20180704
  7. TRANEXAMIC ACID. [Concomitant]
     Active Substance: TRANEXAMIC ACID
     Dosage: 2500 MG (5A) MIX WITHIN FLUIDS
     Dates: start: 20180704
  8. DEXTROSE. [Concomitant]
     Active Substance: DEXTROSE
     Dosage: 500 ML (1 BAG), UNK
     Route: 041
     Dates: start: 20180704
  9. KEYTRUDA [Suspect]
     Active Substance: PEMBROLIZUMAB
     Dosage: 200 MG (2V), MIX WITHIN FLUIDS
     Dates: start: 20180704
  10. POLYBUTINE [Concomitant]
     Dosage: 100 MG (1T), UNK
     Route: 048
     Dates: start: 20180704
  11. CRESNON [Concomitant]
     Dosage: 5 MG (1T), UNK
     Route: 048
     Dates: start: 20180704
  12. NUCYNTA [Concomitant]
     Active Substance: TAPENTADOL HYDROCHLORIDE
     Dosage: 50 MG (1T), UNK
     Route: 048
     Dates: start: 20180704
  13. MEGESTROL ACETATE. [Concomitant]
     Active Substance: MEGESTROL ACETATE
     Dosage: 10 ML (1 PACK), UNK
     Route: 048
     Dates: start: 20180704
  14. COUGH SYRUP (AMMONIUM CHLORIDE (+) CHLORPHENIRAMINE MALEATE (+) DEXTRO [Concomitant]
     Dosage: 20 ML (1 PACK), UNK
     Route: 048
     Dates: start: 20180704
  15. CEFTRIAXONE. [Concomitant]
     Active Substance: CEFTRIAXONE
     Dosage: 2 G (1V), MIX WITHIN FLUIDS
     Dates: start: 20180704
  16. COUGH SYRUP (AMMONIUM CHLORIDE (+) CHLORPHENIRAMINE MALEATE (+) DEXTRO [Concomitant]
     Dosage: 20 ML (1 PACK), UNK
     Route: 048
     Dates: start: 20180704
  17. COFREL [Concomitant]
     Dosage: 20 MG (1T), UNK
     Route: 048
     Dates: start: 20180704
  18. RABEONE [Concomitant]
     Dosage: 10 MG (1T), UNK
     Route: 048
     Dates: start: 20180704
  19. POLYBUTINE [Concomitant]
     Dosage: 100 MG (1T), UNK
     Route: 048
     Dates: start: 20180704
  20. CODEINE [Concomitant]
     Active Substance: CODEINE
     Dosage: 20 MG (1T), UNK
     Route: 048
     Dates: start: 20180704
  21. SMOFKABIVEN [Concomitant]
     Active Substance: AMINO ACIDS\DEXTROSE\ELECTROLYTES NOS\SOYBEAN OIL
     Dosage: 986 ML (1 BAG), UNK
     Route: 041
     Dates: start: 20180704

REACTIONS (1)
  - Death [Fatal]
